FAERS Safety Report 7087094-2 (Version None)
Quarter: 2010Q4

REPORT INFORMATION
  Report Type: 
  Country: None (occurrence: None)
  Receive Date: 20101106
  Receipt Date: 20101027
  Transmission Date: 20110411
  Serious: No
  Sender: FDA-Public Use
  Company Number: US-WYE-H18394510

PATIENT
  Sex: Male

DRUGS (2)
  1. PRISTIQ [Suspect]
     Dosage: UNSPECIFIED
  2. ROXICODONE [Interacting]
     Dosage: UNSPECIFIED

REACTIONS (4)
  - DRUG INTERACTION [None]
  - ELEVATED MOOD [None]
  - FEELING JITTERY [None]
  - MYDRIASIS [None]
